FAERS Safety Report 8313454-5 (Version None)
Quarter: 2012Q2

REPORT INFORMATION
  Report Type: 
  Country: None (occurrence: None)
  Receive Date: 20120425
  Receipt Date: 20120425
  Transmission Date: 20120825
  Serious: Yes (Other)
  Sender: FDA-Public Use
  Company Number: None

PATIENT
  Sex: Female
  Weight: 68.0396 kg

DRUGS (1)
  1. PAXIL [Suspect]
     Indication: DEPRESSION
     Dosage: 1 PER DAY BY MOUTH
     Route: 048
     Dates: start: 20110901

REACTIONS (8)
  - HEART RATE IRREGULAR [None]
  - CONFUSIONAL STATE [None]
  - PARAESTHESIA [None]
  - MUSCLE TWITCHING [None]
  - MYALGIA [None]
  - FEELING OF DESPAIR [None]
  - DRUG WITHDRAWAL SYNDROME [None]
  - DYSARTHRIA [None]
